FAERS Safety Report 17812269 (Version 1)
Quarter: 2020Q2

REPORT INFORMATION
  Report Type: Spontaneous
  Country: FR (occurrence: FR)
  Receive Date: 20200521
  Receipt Date: 20200521
  Transmission Date: 20200714
  Serious: Yes (Other)
  Sender: FDA-Public Use
  Company Number: FR-MYLANLABS-2020M1049157

PATIENT
  Age: 82 Year
  Sex: Male
  Weight: 69 kg

DRUGS (13)
  1. KINERET [Concomitant]
     Active Substance: ANAKINRA
     Dosage: UNK
  2. PIPERACILLINE / TAZOBACTAM MYLAN [Concomitant]
     Active Substance: PIPERACILLIN SODIUM\TAZOBACTAM SODIUM
     Dosage: UNK
  3. LANSOPRAZOLE MYLAN [Concomitant]
     Active Substance: LANSOPRAZOLE
     Dosage: UNK
  4. DITROPAN [Concomitant]
     Active Substance: OXYBUTYNIN CHLORIDE
     Dosage: UNK
  5. MIDAZOLAM MYLAN 5 MG/ML, SOLUTION INJECTABLE (IM-IV) OU RECTALE [Suspect]
     Active Substance: MIDAZOLAM HYDROCHLORIDE
     Indication: ANXIETY
     Dosage: UNK, 2 MILLIGRAMMES PAR HEURE
     Route: 041
     Dates: start: 20200424, end: 20200424
  6. LOVENOX [Concomitant]
     Active Substance: ENOXAPARIN SODIUM
     Dosage: UNK
  7. OROZAMUDOL [Concomitant]
     Active Substance: TRAMADOL
     Dosage: UNK
  8. AMLODIPINE [Concomitant]
     Active Substance: AMLODIPINE BESYLATE
     Dosage: UNK
  9. SOLU-MEDROL [Concomitant]
     Active Substance: METHYLPREDNISOLONE SODIUM SUCCINATE
     Dosage: UNK
  10. NOVORAPID [Concomitant]
     Active Substance: INSULIN ASPART
     Dosage: UNK
  11. ZITHROMAX [Concomitant]
     Active Substance: AZITHROMYCIN DIHYDRATE
     Dosage: UNK
  12. CLOPIDOGREL [Concomitant]
     Active Substance: CLOPIDOGREL BISULFATE
     Dosage: UNK
  13. ESCITALOPRAM ARROW [Concomitant]
     Active Substance: ESCITALOPRAM OXALATE
     Dosage: UNK

REACTIONS (3)
  - Product administration error [Recovered/Resolved]
  - Somnolence [Recovered/Resolved]
  - Device programming error [Recovered/Resolved]

NARRATIVE: CASE EVENT DATE: 20200424
